FAERS Safety Report 10553969 (Version 1)
Quarter: 2014Q4

REPORT INFORMATION
  Report Type: Spontaneous
  Country: US (occurrence: None)
  Receive Date: 20141023
  Receipt Date: 20141023
  Transmission Date: 20150529
  Serious: No
  Sender: FDA-Public Use
  Company Number: AP356-01230-SPO-US

PATIENT
  Age: 41 Year
  Sex: Female

DRUGS (3)
  1. ASPIRIN (ACETYLSALICYLIC ACID) [Concomitant]
     Active Substance: ASPIRIN
  2. BELVIQ [Suspect]
     Active Substance: LORCASERIN HYDROCHLORIDE
     Indication: WEIGHT DECREASED
     Route: 048
     Dates: start: 20140814
  3. IBUPROFEN (IBUPROFEN) [Concomitant]
     Active Substance: IBUPROFEN

REACTIONS (6)
  - Cough [None]
  - Dry mouth [None]
  - Migraine [None]
  - Thirst [None]
  - Hot flush [None]
  - Dizziness [None]

NARRATIVE: CASE EVENT DATE: 20140814
